FAERS Safety Report 5474798-8 (Version None)
Quarter: 2007Q4

REPORT INFORMATION
  Report Type: 
  Country: None (occurrence: None)
  Receive Date: 20071002
  Receipt Date: 20070918
  Transmission Date: 20080405
  Serious: Yes (Other)
  Sender: FDA-Public Use
  Company Number: B0489149A

PATIENT
  Age: 19 Year
  Sex: Female

DRUGS (3)
  1. CEFTAZIDIME [Suspect]
     Indication: SYSTEMIC ANTIBACTERIAL THERAPY
     Dosage: 3G THREE TIMES PER DAY
     Route: 042
     Dates: start: 20010601
  2. TOBRAMYCIN [Suspect]
     Indication: SYSTEMIC ANTIBACTERIAL THERAPY
     Dosage: 120MG THREE TIMES PER DAY
     Route: 042
     Dates: start: 20010601
  3. COLOMYCIN [Suspect]
     Indication: SYSTEMIC ANTIBACTERIAL THERAPY
     Dosage: 2MEGU THREE TIMES PER DAY
     Route: 042
     Dates: start: 20010601

REACTIONS (8)
  - BLOOD CREATININE INCREASED [None]
  - BLOOD UREA INCREASED [None]
  - CREATININE RENAL CLEARANCE DECREASED [None]
  - EOSINOPHILIA [None]
  - HAEMATURIA [None]
  - PYREXIA [None]
  - RASH MACULAR [None]
  - RENAL FAILURE ACUTE [None]
